FAERS Safety Report 6347998-2 (Version None)
Quarter: 2009Q3

REPORT INFORMATION
  Report Type: 
  Country: None (occurrence: None)
  Receive Date: 20090910
  Receipt Date: 20090902
  Transmission Date: 20100115
  Serious: Yes (Hospitalization)
  Sender: FDA-Public Use
  Company Number: JP-ABBOTT-01P-087-0111165-00

PATIENT
  Sex: Male

DRUGS (10)
  1. NORVIR [Suspect]
     Indication: HIV INFECTION
     Route: 048
     Dates: start: 20000425, end: 20050328
  2. NORVIR [Suspect]
     Route: 048
     Dates: start: 20050329, end: 20061220
  3. KALETRA [Suspect]
     Indication: HIV INFECTION
     Route: 048
     Dates: start: 20050329, end: 20061220
  4. KALETRA [Suspect]
  5. KALETRA [Interacting]
     Indication: HIV INFECTION
     Route: 048
     Dates: start: 20061221
  6. ZIDOVUDINE [Suspect]
     Indication: HIV INFECTION
     Route: 048
     Dates: start: 19991213
  7. ZIDOVUDINE [Suspect]
     Route: 048
     Dates: start: 19991101, end: 19991212
  8. LAMIVUDINE [Suspect]
     Indication: HIV INFECTION
     Route: 048
     Dates: start: 19991101
  9. INDINIVIR SULFATE [Suspect]
     Indication: HIV INFECTION
     Route: 048
     Dates: start: 20000425, end: 20050328
  10. INDINIVIR SULFATE [Suspect]
     Indication: PROPHYLAXIS AGAINST DIARRHOEA
     Route: 048
     Dates: start: 19991101, end: 20000424

REACTIONS (9)
  - ALANINE AMINOTRANSFERASE INCREASED [None]
  - ASPARTATE AMINOTRANSFERASE INCREASED [None]
  - BLOOD BILIRUBIN INCREASED [None]
  - DIARRHOEA [None]
  - HEPATIC FUNCTION ABNORMAL [None]
  - HYPOAESTHESIA [None]
  - MUSCLE HAEMORRHAGE [None]
  - SENSORY DISTURBANCE [None]
  - SWELLING [None]
